FAERS Safety Report 9484770 (Version 3)
Quarter: 2014Q2

REPORT INFORMATION
  Report Type: Spontaneous
  Country: US (occurrence: US)
  Receive Date: 20130828
  Receipt Date: 20140627
  Transmission Date: 20141212
  Serious: Yes (Hospitalization)
  Sender: FDA-Public Use
  Company Number: US-GLAXOSMITHKLINE-A1039228A

PATIENT
  Age: 30 Year
  Sex: Female

DRUGS (3)
  1. FLOLAN [Suspect]
     Indication: PULMONARY ARTERIAL HYPERTENSION
     Dosage: 34.5NGKM CONTINUOUS
     Route: 042
     Dates: start: 20120622
  2. REVATIO [Concomitant]
  3. LETAIRIS [Concomitant]

REACTIONS (3)
  - Device related infection [Unknown]
  - Investigation [Unknown]
  - Urinary tract infection [Unknown]
